FAERS Safety Report 4901890-6 (Version None)
Quarter: 2006Q1

REPORT INFORMATION
  Report Type: 
  Country: None (occurrence: None)
  Receive Date: 20060202
  Receipt Date: 20060202
  Transmission Date: 20060701
  Serious: No
  Sender: FDA-Public Use
  Company Number: None

PATIENT
  Sex: Female
  Weight: 96.0718 kg

DRUGS (1)
  1. DILTIZEM ER 240MG [Suspect]
     Indication: HYPERTENSION
     Dosage: 1 PO QD
     Route: 048
     Dates: start: 20050811, end: 20051219

REACTIONS (2)
  - DRUG INTOLERANCE [None]
  - NAUSEA [None]
